FAERS Safety Report 17770388 (Version 1)
Quarter: 2020Q2

REPORT INFORMATION
  Report Type: Report from Study
  Country: US (occurrence: US)
  Receive Date: 20200512
  Receipt Date: 20200512
  Transmission Date: 20200714
  Serious: Yes (Hospitalization, Other)
  Sender: FDA-Public Use
  Company Number: US-SHIRE-US202015448

PATIENT
  Sex: Female

DRUGS (3)
  1. RITUXAN [Concomitant]
     Active Substance: RITUXIMAB
     Indication: PRODUCT USED FOR UNKNOWN INDICATION
  2. GAMMAGARD [Concomitant]
     Active Substance: HUMAN IMMUNOGLOBULIN G
     Indication: PRODUCT USED FOR UNKNOWN INDICATION
  3. HUMAN NORMAL IMMUNOGLOBULIN; LIQUID 20 [Suspect]
     Active Substance: HUMAN IMMUNOGLOBULIN G
     Indication: PRIMARY IMMUNODEFICIENCY SYNDROME
     Route: 065

REACTIONS (19)
  - Cardiac flutter [Unknown]
  - Neuropathy peripheral [Unknown]
  - Migraine [Unknown]
  - Dizziness [Unknown]
  - Blood pressure abnormal [Unknown]
  - Dyspnoea [Unknown]
  - Dysphagia [Unknown]
  - Insomnia [Unknown]
  - Epstein-Barr viraemia [Unknown]
  - Fatigue [Unknown]
  - Radiation injury [Unknown]
  - Fall [Unknown]
  - Kidney infection [Unknown]
  - Aneurysm [Unknown]
  - Spinal cord injury [Unknown]
  - Paralysis [Unknown]
  - Anxiety [Unknown]
  - Paraesthesia [Unknown]
  - Thyroid disorder [Unknown]
